FAERS Safety Report 14173163 (Version 2)
Quarter: 2018Q1

REPORT INFORMATION
  Report Type: Spontaneous
  Country: DE (occurrence: DE)
  Receive Date: 20171109
  Receipt Date: 20180226
  Transmission Date: 20180508
  Serious: Yes (Death, Hospitalization, Other)
  Sender: FDA-Public Use
  Company Number: DE-BRISTOL-MYERS SQUIBB COMPANY-BMS-2017-099705

PATIENT
  Age: 86 Year
  Sex: Female

DRUGS (1)
  1. ELIQUIS [Suspect]
     Active Substance: APIXABAN
     Indication: PORTAL VEIN THROMBOSIS
     Dosage: UNK
     Route: 065
     Dates: end: 20170315

REACTIONS (3)
  - Basal ganglia haemorrhage [Fatal]
  - Product use in unapproved indication [Unknown]
  - Cerebral ventricle collapse [Fatal]

NARRATIVE: CASE EVENT DATE: 20170315
